FAERS Safety Report 8010804 (Version 2)
Quarter: 2012Q4

REPORT INFORMATION
  Report Type: Report from Study
  Country: IN (occurrence: US)
  Receive Date: 20110627
  Receipt Date: 20121226
  Transmission Date: 20130627
  Serious: Yes (Death, Hospitalization)
  Sender: FDA-Public Use
  Company Number: US-BRISTOL-MYERS SQUIBB COMPANY-15724669

PATIENT
  Age: 64 Year
  Sex: Male

DRUGS (1)
  1. IPILIMUMAB [Suspect]
     Indication: MALIGNANT MELANOMA
     Route: 042
     Dates: start: 20110113, end: 20110317

REACTIONS (4)
  - Malignant neoplasm progression [Fatal]
  - Colitis [Fatal]
  - Gastrointestinal perforation [Fatal]
  - Pneumonia [Not Recovered/Not Resolved]
